FAERS Safety Report 17600202 (Version 1)
Quarter: 2020Q1

REPORT INFORMATION
  Report Type: Spontaneous
  Country: IT (occurrence: IT)
  Receive Date: 20200330
  Receipt Date: 20200330
  Transmission Date: 20200409
  Serious: Yes (Hospitalization)
  Sender: FDA-Public Use
  Company Number: IT-TEVA-2020-IT-1214068

PATIENT
  Age: 74 Year
  Sex: Male

DRUGS (1)
  1. METHOTREXATE. [Suspect]
     Active Substance: METHOTREXATE
     Indication: TEMPORAL ARTERITIS
     Dosage: 5 MG
     Route: 048
     Dates: start: 20160429, end: 20170825

REACTIONS (2)
  - Candida infection [Unknown]
  - Lung abscess [Unknown]

NARRATIVE: CASE EVENT DATE: 20170811
